FAERS Safety Report 16404400 (Version 1)
Quarter: 2019Q3

REPORT INFORMATION
  Report Type: Spontaneous
  Country: US (occurrence: US)
  Receive Date: 20190606
  Receipt Date: 20190606
  Transmission Date: 20191004
  Serious: No
  Sender: FDA-Public Use
  Company Number: None

PATIENT
  Age: 70 Year
  Sex: Female
  Weight: 67.5 kg

DRUGS (2)
  1. RISEDRONATE [Suspect]
     Active Substance: RISEDRONATE SODIUM
     Dosage: ?          OTHER FREQUENCY:EVERY MONTH;?
     Route: 048
     Dates: start: 20190522, end: 20190606
  2. RISENDRONATE [Concomitant]
     Active Substance: RISEDRONIC ACID
     Dates: start: 20190522, end: 20190606

REACTIONS (9)
  - Decreased appetite [None]
  - Anxiety [None]
  - Arthralgia [None]
  - Back pain [None]
  - Nausea [None]
  - Neck pain [None]
  - Diarrhoea [None]
  - Lethargy [None]
  - Myalgia [None]

NARRATIVE: CASE EVENT DATE: 20190522
